FAERS Safety Report 9294302 (Version 1)
Quarter: 2013Q2

REPORT INFORMATION
  Report Type: Spontaneous
  Country: US (occurrence: US)
  Receive Date: 20130516
  Receipt Date: 20130516
  Transmission Date: 20140414
  Serious: No
  Sender: FDA-Public Use
  Company Number: US-BANPHARM-20131214

PATIENT
  Sex: Female

DRUGS (1)
  1. IBUPROFEN CAPSULES 200 MG [Suspect]
     Indication: TOOTHACHE
     Route: 048

REACTIONS (3)
  - Drug ineffective [Unknown]
  - Therapeutic response unexpected with drug substitution [Unknown]
  - Inappropriate schedule of drug administration [Unknown]
